FAERS Safety Report 5317104-1 (Version None)
Quarter: 2007Q2

REPORT INFORMATION
  Report Type: 
  Country: None (occurrence: None)
  Receive Date: 20070504
  Receipt Date: 20070420
  Transmission Date: 20071010
  Serious: Yes (Other)
  Sender: FDA-Public Use
  Company Number: JP-ROCHE-490705

PATIENT
  Age: 12 Year
  Sex: Female
  Weight: 48 kg

DRUGS (6)
  1. TAMIFLU [Suspect]
     Route: 048
     Dates: start: 20070319, end: 20070321
  2. TAMIFLU [Suspect]
     Route: 048
     Dates: start: 20070322, end: 20070322
  3. CLARITHROMYCIN [Concomitant]
     Route: 048
     Dates: start: 20070319, end: 20070322
  4. MEDICON [Concomitant]
     Route: 048
     Dates: start: 20070319, end: 20070322
  5. MUCODYNE [Concomitant]
     Route: 048
     Dates: start: 20070319, end: 20070322
  6. SOLITA [Concomitant]
     Route: 041
     Dates: start: 20070319, end: 20070319

REACTIONS (1)
  - GRAND MAL CONVULSION [None]
